FAERS Safety Report 23532837 (Version 2)
Quarter: 2024Q1

REPORT INFORMATION
  Report Type: Spontaneous
  Country: GB (occurrence: GB)
  Receive Date: 20240216
  Receipt Date: 20240226
  Transmission Date: 20240410
  Serious: Yes (Death, Hospitalization, Other)
  Sender: FDA-Public Use
  Company Number: None

PATIENT
  Age: 5 Year
  Sex: Male

DRUGS (20)
  1. CISPLATIN [Suspect]
     Active Substance: CISPLATIN
     Indication: Brain cancer metastatic
     Dosage: PARENT ROUTE : [] (0.4.0.127.0.16.1.1.2.6 ; )
     Route: 065
     Dates: start: 20191101, end: 20191216
  2. CISPLATIN [Suspect]
     Active Substance: CISPLATIN
     Indication: Chemotherapy
     Dosage: UNK; CYCLIC (TWO ROUNDS OF CHEMOTHERAPY); ;
     Route: 065
  3. CYCLOPHOSPHAMIDE [Suspect]
     Active Substance: CYCLOPHOSPHAMIDE
     Indication: Chemotherapy
     Dosage: PARENT ROUTE : [] (0.4.0.127.0.16.1.1.2.6 ; )
     Route: 065
     Dates: start: 20191101, end: 20191216
  4. CYCLOPHOSPHAMIDE [Suspect]
     Active Substance: CYCLOPHOSPHAMIDE
     Indication: Brain cancer metastatic
     Dosage: UNK; CYCLIC (TWO ROUNDS OF CHEMOTHERAPY); ;
     Route: 065
  5. VEPESID [Suspect]
     Active Substance: ETOPOSIDE
     Indication: Chemotherapy
     Dosage: UNK
     Route: 042
     Dates: start: 20191101, end: 20191216
  6. VEPESID [Suspect]
     Active Substance: ETOPOSIDE
     Indication: Brain cancer metastatic
     Dosage: UNK; CYCLIC (TWO ROUNDS OF CHEMOTHERAPY); ;
     Route: 050
  7. VEPESID [Suspect]
     Active Substance: ETOPOSIDE
     Dosage: HIGH DOSE CONSOLIDATION THERAPY; ;
     Route: 050
  8. VINCRISTINE SULFATE [Suspect]
     Active Substance: VINCRISTINE SULFATE
     Indication: Chemotherapy
     Dosage: PARENT ROUTE : [] (0.4.0.127.0.16.1.1.2.6 ; )
     Route: 065
     Dates: start: 20191101, end: 20191216
  9. VINCRISTINE SULFATE [Suspect]
     Active Substance: VINCRISTINE SULFATE
     Indication: Brain cancer metastatic
  10. APREPITANT [Concomitant]
     Active Substance: APREPITANT
     Indication: Product used for unknown indication
     Dosage: PARENT ROUTE : [] (0.4.0.127.0.16.1.1.2.6
     Route: 065
  11. CARBOPLATIN [Concomitant]
     Active Substance: CARBOPLATIN
     Indication: Product used for unknown indication
     Dosage: PARENT ROUTE : [] (0.4.0.127.0.16.1.1.2.6 ;
     Route: 065
  12. CARBOPLATIN [Concomitant]
     Active Substance: CARBOPLATIN
     Indication: Brain cancer metastatic
  13. COTRIMOXAZOLE [Concomitant]
     Active Substance: SULFAMETHOXAZOLE\TRIMETHOPRIM
     Indication: Product used for unknown indication
     Route: 065
  14. DESMOPRESSIN [Concomitant]
     Active Substance: DESMOPRESSIN
     Indication: Product used for unknown indication
     Route: 065
  15. LENOGRASTIM [Concomitant]
     Active Substance: LENOGRASTIM
     Indication: Product used for unknown indication
     Route: 065
  16. LEVETIRACETAM [Concomitant]
     Active Substance: LEVETIRACETAM
     Indication: Product used for unknown indication
     Route: 065
  17. LOPERAMIDE [Concomitant]
     Active Substance: LOPERAMIDE
     Indication: Product used for unknown indication
     Route: 065
  18. METOCLOPRAMIDE [Concomitant]
     Active Substance: METOCLOPRAMIDE
     Indication: Product used for unknown indication
     Route: 065
  19. ONDANSETRON [Concomitant]
     Active Substance: ONDANSETRON
     Indication: Product used for unknown indication
     Route: 065
  20. THIOTEPA [Concomitant]
     Active Substance: THIOTEPA
     Indication: Brain cancer metastatic
     Dosage: UNK PARENT ROUTE : [] (0.4.0.127.0.16.1.1.2.6
     Route: 065

REACTIONS (19)
  - Haemorrhage intracranial [Fatal]
  - Headache [Unknown]
  - Illness [Unknown]
  - Malignant neoplasm progression [Unknown]
  - Hydrocephalus [Unknown]
  - Pain [Unknown]
  - Abdominal discomfort [Unknown]
  - Rectal prolapse [Unknown]
  - Feeding disorder [Unknown]
  - Intestinal prolapse [Unknown]
  - Neutropenic sepsis [Unknown]
  - Pancytopenia [Unknown]
  - Acute kidney injury [Unknown]
  - Seizure [Unknown]
  - Mouth ulceration [Unknown]
  - Diarrhoea [Unknown]
  - Vomiting [Unknown]
  - Drug ineffective [Unknown]
  - Mucosal inflammation [Unknown]

NARRATIVE: CASE EVENT DATE: 20190101
